FAERS Safety Report 4621748-X (Version None)
Quarter: 2005Q1

REPORT INFORMATION
  Report Type: 
  Country: None (occurrence: None)
  Receive Date: 20050329
  Receipt Date: 20050322
  Transmission Date: 20050727
  Serious: Yes (Hospitalization)
  Sender: FDA-Public Use
  Company Number: PHRM2005FR01112

PATIENT
  Age: 52 Year
  Sex: Female

DRUGS (4)
  1. DAFALGAN [Suspect]
     Dosage: 500 MG, 6QD
     Route: 048
     Dates: start: 20041222, end: 20041223
  2. FRAXIPARINE [Concomitant]
     Dosage: 0.4 ML, QD
     Route: 058
     Dates: start: 20041115
  3. DUPHALAC [Concomitant]
     Dosage: 10 G, 6QD
     Route: 048
     Dates: start: 20041215
  4. LIORESAL [Suspect]
     Dosage: 15 MG, TID
     Route: 048
     Dates: end: 20041223

REACTIONS (5)
  - BLOOD ALKALINE PHOSPHATASE INCREASED [None]
  - BLOOD LACTATE DEHYDROGENASE INCREASED [None]
  - GAMMA-GLUTAMYLTRANSFERASE INCREASED [None]
  - HEPATITIS [None]
  - TRANSAMINASES INCREASED [None]
